FAERS Safety Report 4628227-4 (Version None)
Quarter: 2005Q2

REPORT INFORMATION
  Report Type: 
  Country: None (occurrence: None)
  Receive Date: 20050401
  Receipt Date: 20050314
  Transmission Date: 20051028
  Serious: Yes (Hospitalization, Other)
  Sender: FDA-Public Use
  Company Number: 2005039385

PATIENT
  Age: 46 Year
  Sex: Female
  Weight: 54.8852 kg

DRUGS (6)
  1. BEXTRA [Suspect]
     Indication: ARTHRITIS
     Dosage: 20 MG (20 MG, 1 IN 1 D), ORAL
     Route: 048
     Dates: start: 20030214, end: 20030228
  2. HYDROXYCHLOROQUINE PHOSPHATE (HYDROXYCHLOROQUINE PHOSPHATE) [Concomitant]
  3. ROFECOXIB [Concomitant]
  4. MULTIVITAMINS (ASCORBIC ACID/ERGOCALCIFEROL/FOLIC ACID/NICOTINAMIDE/PA [Concomitant]
  5. ASPIRIN [Concomitant]
  6. CALCIUM (CALCIUM) [Concomitant]

REACTIONS (44)
  - ALANINE AMINOTRANSFERASE INCREASED [None]
  - ALOPECIA [None]
  - ANTINUCLEAR ANTIBODY POSITIVE [None]
  - ARTHRALGIA [None]
  - ASTHENIA [None]
  - BACTERIA URINE [None]
  - BONE PAIN [None]
  - BURNING SENSATION [None]
  - DERMATITIS [None]
  - DERMATITIS CONTACT [None]
  - DISEASE RECURRENCE [None]
  - DRUG ERUPTION [None]
  - DRY EYE [None]
  - DYSURIA [None]
  - ERYTHEMA [None]
  - ERYTHEMA MULTIFORME [None]
  - EYE IRRITATION [None]
  - FACE OEDEMA [None]
  - FATIGUE [None]
  - FEELING ABNORMAL [None]
  - HAIR TEXTURE ABNORMAL [None]
  - LEUKOCYTOSIS [None]
  - LOCALISED OEDEMA [None]
  - LYMPHADENOPATHY [None]
  - MALAISE [None]
  - MUSCULOSKELETAL STIFFNESS [None]
  - MYALGIA [None]
  - ODYNOPHAGIA [None]
  - OEDEMA PERIPHERAL [None]
  - PERIORBITAL OEDEMA [None]
  - PHARYNGOLARYNGEAL PAIN [None]
  - PHOTOPHOBIA [None]
  - PHOTOSENSITIVITY REACTION [None]
  - PRURITUS [None]
  - PYREXIA [None]
  - RASH [None]
  - RASH PAPULAR [None]
  - RED BLOOD CELLS URINE [None]
  - SKIN EXFOLIATION [None]
  - SYNOVITIS [None]
  - SYSTEMIC LUPUS ERYTHEMATOSUS [None]
  - TONGUE DISCOLOURATION [None]
  - URINE LEUKOCYTE ESTERASE POSITIVE [None]
  - WHITE BLOOD CELLS URINE POSITIVE [None]
